FAERS Safety Report 10070932 (Version 1)
Quarter: 2014Q2

REPORT INFORMATION
  Report Type: Spontaneous
  Country: CH (occurrence: CH)
  Receive Date: 20140410
  Receipt Date: 20140410
  Transmission Date: 20141212
  Serious: Yes (Other)
  Sender: FDA-Public Use
  Company Number: PHHY2014CH041682

PATIENT
  Age: 58 Year
  Sex: Male

DRUGS (3)
  1. GENTAMICIN [Suspect]
  2. RIFAMPICIN [Suspect]
  3. VANCOMYCIN [Suspect]

REACTIONS (3)
  - Cardiac valve abscess [Unknown]
  - Splenic abscess [Unknown]
  - Pyrexia [Unknown]
